FAERS Safety Report 7651908-5 (Version None)
Quarter: 2011Q3

REPORT INFORMATION
  Report Type: 
  Country: None (occurrence: None)
  Receive Date: 20110803
  Receipt Date: 20110721
  Transmission Date: 20111222
  Serious: No
  Sender: FDA-Public Use
  Company Number: US-BIOGENIDEC-2011BI026547

PATIENT
  Sex: Female

DRUGS (4)
  1. TYSABRI [Suspect]
     Indication: MULTIPLE SCLEROSIS
     Route: 042
     Dates: start: 20110401
  2. NORCO [Concomitant]
     Indication: PREMEDICATION
  3. BENADRYL [Concomitant]
     Indication: PREMEDICATION
  4. IV STEROIDS [Concomitant]
     Indication: MULTIPLE SCLEROSIS

REACTIONS (11)
  - CARTILAGE INJURY [None]
  - MUSCULAR WEAKNESS [None]
  - LOSS OF CONSCIOUSNESS [None]
  - ASTHENIA [None]
  - RESPIRATORY TRACT INFECTION [None]
  - FATIGUE [None]
  - RIB FRACTURE [None]
  - CONTUSION [None]
  - FALL [None]
  - HEAD INJURY [None]
  - MUSCLE SPASMS [None]
